FAERS Safety Report 6722151-9 (Version None)
Quarter: 2010Q2

REPORT INFORMATION
  Report Type: 
  Country: None (occurrence: None)
  Receive Date: 20100512
  Receipt Date: 20100505
  Transmission Date: 20101027
  Serious: Yes (Hospitalization)
  Sender: FDA-Public Use
  Company Number: US-SANOFI-AVENTIS-2010SA026493

PATIENT
  Age: 73 Year
  Sex: Male

DRUGS (5)
  1. AMARYL [Suspect]
     Route: 048
     Dates: end: 20090901
  2. AMARYL [Suspect]
     Route: 048
     Dates: start: 20091024, end: 20091101
  3. PLAVIX [Concomitant]
  4. METOPROLOL [Concomitant]
  5. ALL OTHER THERAPEUTIC PRODUCTS [Concomitant]

REACTIONS (4)
  - DECREASED APPETITE [None]
  - DIABETIC COMA [None]
  - MEMORY IMPAIRMENT [None]
  - MYOCARDIAL INFARCTION [None]
